FAERS Safety Report 6226999-9 (Version None)
Quarter: 2009Q3

REPORT INFORMATION
  Report Type: 
  Country: None (occurrence: None)
  Receive Date: 20090610
  Receipt Date: 20090603
  Transmission Date: 20100115
  Serious: Yes (Other)
  Sender: FDA-Public Use
  Company Number: CH-WYE-G03683809

PATIENT
  Age: 58 Year
  Sex: Male

DRUGS (6)
  1. EFFEXOR XR [Suspect]
     Dosage: SEE IMAGE
     Route: 048
     Dates: end: 20090413
  2. EFFEXOR XR [Suspect]
     Dosage: SEE IMAGE
     Route: 048
     Dates: start: 20090414, end: 20090416
  3. EFFEXOR XR [Suspect]
     Dosage: SEE IMAGE
     Route: 048
     Dates: start: 20090417
  4. OXYCONTIN [Suspect]
     Dosage: 80 MG 1X PER 1 DAY ORAL
     Route: 048
     Dates: start: 20090414, end: 20090421
  5. REMERON [Suspect]
     Dosage: 30 MG 1X PER 1 DAY ORAL
     Route: 048
     Dates: start: 20090414, end: 20090421
  6. RAMIPRIL [Concomitant]

REACTIONS (3)
  - POTENTIATING DRUG INTERACTION [None]
  - TREATMENT NONCOMPLIANCE [None]
  - URINARY RETENTION [None]
